FAERS Safety Report 11389064 (Version 1)
Quarter: 2015Q3

REPORT INFORMATION
  Report Type: Spontaneous
  Country: US (occurrence: US)
  Receive Date: 20150817
  Receipt Date: 20150817
  Transmission Date: 20151125
  Serious: Yes (Hospitalization)
  Sender: FDA-Public Use
  Company Number: US-TEVA-586038USA

PATIENT
  Age: 41 Year
  Sex: Male
  Weight: 170 kg

DRUGS (2)
  1. CISPLATIN. [Suspect]
     Active Substance: CISPLATIN
     Indication: OESOPHAGEAL CARCINOMA
     Route: 065
  2. FLUOROURACIL. [Suspect]
     Active Substance: FLUOROURACIL
     Indication: OESOPHAGEAL CARCINOMA
     Route: 065

REACTIONS (5)
  - Thrombosis [Unknown]
  - Nausea [Unknown]
  - Vomiting [Unknown]
  - Medical device site infection [Unknown]
  - Mucosal inflammation [Unknown]
